FAERS Safety Report 11589235 (Version 2)
Quarter: 2015Q4

REPORT INFORMATION
  Report Type: Spontaneous
  Country: US (occurrence: US)
  Receive Date: 20151002
  Receipt Date: 20151210
  Transmission Date: 20160304
  Serious: Yes (Other)
  Sender: FDA-Public Use
  Company Number: US-GILEAD-2015-0174030

PATIENT
  Age: 24 Year
  Sex: Male
  Weight: 93.88 kg

DRUGS (1)
  1. TRUVADA [Suspect]
     Active Substance: EMTRICITABINE\TENOFOVIR DISOPROXIL FUMARATE
     Indication: PROPHYLAXIS AGAINST HIV INFECTION
     Dosage: 1 DF, UNK
     Route: 048
     Dates: start: 20141112, end: 20150610

REACTIONS (3)
  - Genotype drug resistance test positive [Not Recovered/Not Resolved]
  - HIV infection [Not Recovered/Not Resolved]
  - Drug ineffective [Unknown]
